FAERS Safety Report 6200188-6 (Version None)
Quarter: 2009Q2

REPORT INFORMATION
  Report Type: 
  Country: None (occurrence: None)
  Receive Date: 20090522
  Receipt Date: 20090512
  Transmission Date: 20091009
  Serious: Yes (Hospitalization, Other)
  Sender: FDA-Public Use
  Company Number: US-PFIZER INC-2007099793

PATIENT
  Sex: Female
  Weight: 83.636 kg

DRUGS (2)
  1. CHANTIX [Suspect]
     Indication: SMOKING CESSATION THERAPY
     Dosage: 1 MG, 2X/DAY
     Dates: start: 20071110, end: 20071101
  2. LORTAB [Suspect]
     Indication: HEADACHE

REACTIONS (11)
  - ARTHRALGIA [None]
  - BLOOD CHOLESTEROL INCREASED [None]
  - CHEST PAIN [None]
  - HEPATIC ENZYME INCREASED [None]
  - HEPATITIS [None]
  - LIVER FUNCTION TEST ABNORMAL [None]
  - RASH MACULO-PAPULAR [None]
  - RED CELL DISTRIBUTION WIDTH INCREASED [None]
  - VIRAL INFECTION [None]
  - WEIGHT INCREASED [None]
  - WHITE BLOOD CELLS URINE POSITIVE [None]
